FAERS Safety Report 22015143 (Version 1)
Quarter: 2023Q1

REPORT INFORMATION
  Report Type: Other
  Country: CN (occurrence: None)
  Receive Date: 20230221
  Receipt Date: 20230221
  Transmission Date: 20230418
  Serious: Yes (Other)
  Sender: FDA-Public Use
  Company Number: CN-ROCHE-3288962

PATIENT
  Age: 33 Year
  Sex: Male

DRUGS (1)
  1. GAVRETO [Suspect]
     Active Substance: PRALSETINIB
     Indication: Lung neoplasm malignant
     Route: 048
     Dates: start: 20221031

REACTIONS (1)
  - Myocardial necrosis marker increased [Not Recovered/Not Resolved]

NARRATIVE: CASE EVENT DATE: 20230120
